FAERS Safety Report 12782868 (Version 3)
Quarter: 2016Q4

REPORT INFORMATION
  Report Type: Spontaneous
  Country: KR (occurrence: KR)
  Receive Date: 20160927
  Receipt Date: 20161007
  Transmission Date: 20170207
  Serious: No
  Sender: FDA-Public Use
  Company Number: PHHY2016KR130663

PATIENT
  Age: 41 Year
  Sex: Male

DRUGS (1)
  1. VOTRIENT [Suspect]
     Active Substance: PAZOPANIB HYDROCHLORIDE
     Indication: METASTATIC RENAL CELL CARCINOMA
     Dosage: 800 MG, QD
     Route: 048

REACTIONS (7)
  - Skin ulcer [Recovering/Resolving]
  - Hair colour changes [Recovering/Resolving]
  - Pain [Recovering/Resolving]
  - Pruritus genital [Unknown]
  - Genital lesion [Unknown]
  - Drug ineffective [Unknown]
  - Rash erythematous [Recovering/Resolving]
